FAERS Safety Report 21119116 (Version 1)
Quarter: 2022Q3

REPORT INFORMATION
  Report Type: Report from Study
  Country: US (occurrence: US)
  Receive Date: 20220722
  Receipt Date: 20220722
  Transmission Date: 20221026
  Serious: No
  Sender: FDA-Public Use
  Company Number: US-NOVARTISTESTPH-NVSC2022US165672

PATIENT
  Sex: Male

DRUGS (2)
  1. ENTRESTO [Suspect]
     Active Substance: SACUBITRIL\VALSARTAN
     Indication: Arteriosclerosis coronary artery
     Dosage: 2 DOSAGE FORM, BID
     Route: 048
     Dates: start: 2022, end: 20220720
  2. ENTRESTO [Suspect]
     Active Substance: SACUBITRIL\VALSARTAN
     Indication: Angina pectoris
     Dosage: 1 DOSAGE FORM, BID
     Route: 048

REACTIONS (3)
  - Hypotension [Unknown]
  - Fatigue [Unknown]
  - Product use in unapproved indication [Unknown]
